FAERS Safety Report 6710478-6 (Version None)
Quarter: 2010Q2

REPORT INFORMATION
  Report Type: 
  Country: None (occurrence: None)
  Receive Date: 20100504
  Receipt Date: 20100423
  Transmission Date: 20101027
  Serious: Yes (Hospitalization, Other)
  Sender: FDA-Public Use
  Company Number: IT-PFIZER INC-2010048870

PATIENT
  Age: 45 Year
  Sex: Male

DRUGS (5)
  1. DIAZEPAM [Suspect]
     Indication: PHANTOM PAIN
     Dosage: 5 MG, UNK
  2. SERTRALINE HCL [Suspect]
     Indication: PHANTOM PAIN
     Dosage: 50 MBQ, UNK
  3. GABAPENTIN [Suspect]
     Indication: PHANTOM PAIN
     Dosage: 600 MG, UNK
  4. MORPHINE [Suspect]
     Indication: COMPLEX REGIONAL PAIN SYNDROME
     Dosage: 0.25 MG, UNK
  5. ROPIVACAINE [Concomitant]

REACTIONS (6)
  - DEPENDENCE ON ENABLING MACHINE OR DEVICE [None]
  - DRUG INEFFECTIVE [None]
  - INFECTION [None]
  - PAIN [None]
  - PHANTOM PAIN [None]
  - SKIN ULCER [None]
